FAERS Safety Report 6530833-7 (Version None)
Quarter: 2010Q1

REPORT INFORMATION
  Report Type: 
  Country: None (occurrence: None)
  Receive Date: 20100108
  Receipt Date: 20090322
  Transmission Date: 20100710
  Serious: No
  Sender: FDA-Public Use
  Company Number: A0775633A

PATIENT
  Age: 64 Year
  Sex: Female

DRUGS (2)
  1. LOVAZA [Suspect]
     Route: 048
     Dates: start: 20090301, end: 20090301
  2. THYROID TAB [Concomitant]

REACTIONS (2)
  - INFLUENZA LIKE ILLNESS [None]
  - PAIN [None]
